FAERS Safety Report 9221464 (Version 1)
Quarter: 2013Q2

REPORT INFORMATION
  Report Type: Spontaneous
  Country: PH (occurrence: PH)
  Receive Date: 20130410
  Receipt Date: 20130410
  Transmission Date: 20140414
  Serious: Yes (Other)
  Sender: FDA-Public Use
  Company Number: PH-ABBOTT-13X-128-1073764-00

PATIENT
  Age: 61 Year
  Sex: Female

DRUGS (2)
  1. LIPANTHYL [Suspect]
     Indication: DYSLIPIDAEMIA
  2. ANTIHYPERTENSIVES [Suspect]
     Indication: HYPERTENSION

REACTIONS (3)
  - Ocular icterus [Unknown]
  - Yellow skin [Unknown]
  - Chromaturia [Unknown]
